FAERS Safety Report 10478326 (Version 2)
Quarter: 2014Q4

REPORT INFORMATION
  Report Type: Spontaneous
  Country: US (occurrence: US)
  Receive Date: 20140926
  Receipt Date: 20141104
  Transmission Date: 20150528
  Serious: No
  Sender: FDA-Public Use
  Company Number: US-ELI_LILLY_AND_COMPANY-US201409006325

PATIENT
  Age: 77 Year
  Weight: 84.35 kg

DRUGS (1)
  1. HUMALOG [Suspect]
     Active Substance: INSULIN LISPRO
     Indication: PRODUCT USED FOR UNKNOWN INDICATION
     Route: 058

REACTIONS (4)
  - Emotional distress [Unknown]
  - Blood glucose increased [Unknown]
  - Fatigue [Unknown]
  - Scar [Unknown]

NARRATIVE: CASE EVENT DATE: 20140915
